FAERS Safety Report 20726980 (Version 1)
Quarter: 2022Q2

REPORT INFORMATION
  Report Type: Spontaneous
  Country: US (occurrence: US)
  Receive Date: 20220419
  Receipt Date: 20220419
  Transmission Date: 20220720
  Serious: No
  Sender: FDA-Public Use
  Company Number: US-PFIZER INC-202101871954

PATIENT
  Age: 77 Year
  Sex: Female

DRUGS (2)
  1. IBRANCE [Suspect]
     Active Substance: PALBOCICLIB
     Dosage: 125 MG
     Dates: start: 20211220
  2. IBRANCE [Suspect]
     Active Substance: PALBOCICLIB
     Dosage: 125 MG
     Dates: start: 20211226

REACTIONS (5)
  - Drug ineffective [Unknown]
  - Fatigue [Unknown]
  - Amnesia [Unknown]
  - Malaise [Unknown]
  - Contusion [Unknown]

NARRATIVE: CASE EVENT DATE: 20211201
